FAERS Safety Report 22729765 (Version 2)
Quarter: 2023Q4

REPORT INFORMATION
  Report Type: Spontaneous
  Country: US (occurrence: US)
  Receive Date: 20230720
  Receipt Date: 20231002
  Transmission Date: 20240110
  Serious: Yes (Hospitalization)
  Sender: FDA-Public Use
  Company Number: US-MEDEXUS PHARMA, INC.-2023MED00194

PATIENT
  Sex: Female

DRUGS (2)
  1. RASUVO [Suspect]
     Active Substance: METHOTREXATE SODIUM
     Dosage: UNK
  2. RASUVO [Suspect]
     Active Substance: METHOTREXATE SODIUM
     Dosage: MUSCLE OF THE LEGS
     Route: 030
     Dates: start: 2023

REACTIONS (10)
  - Hospitalisation [Not Recovered/Not Resolved]
  - Administration site bruise [Unknown]
  - Administration site nodule [Unknown]
  - Administration site swelling [Unknown]
  - Wrong technique in device usage process [Not Recovered/Not Resolved]
  - Illness [Unknown]
  - Incorrect route of product administration [Not Recovered/Not Resolved]
  - Product contamination [Not Recovered/Not Resolved]
  - Device delivery system issue [Not Recovered/Not Resolved]
  - Product dose omission issue [Not Recovered/Not Resolved]

NARRATIVE: CASE EVENT DATE: 20230101
